FAERS Safety Report 25183342 (Version 1)
Quarter: 2025Q2

REPORT INFORMATION
  Report Type: Report from Study
  Country: US (occurrence: US)
  Receive Date: 20250410
  Receipt Date: 20250410
  Transmission Date: 20250717
  Serious: Yes (Life-Threatening, Hospitalization)
  Sender: SAMSUNG BIOEPIS
  Company Number: US-SAMSUNG BIOEPIS-SB-2025-12147

PATIENT
  Sex: Female
  Weight: 57.15 kg

DRUGS (1)
  1. RENFLEXIS [Suspect]
     Active Substance: INFLIXIMAB-ABDA
     Indication: Colitis ulcerative
     Route: 042
     Dates: start: 20250321

REACTIONS (2)
  - Coronary artery thrombosis [Not Recovered/Not Resolved]
  - Hepatic vascular thrombosis [Not Recovered/Not Resolved]
